FAERS Safety Report 11227170 (Version 1)
Quarter: 2015Q2

REPORT INFORMATION
  Report Type: Spontaneous
  Country: US (occurrence: None)
  Receive Date: 20150626
  Receipt Date: 20150626
  Transmission Date: 20150821
  Serious: Yes (Hospitalization, Disabling, Other)
  Sender: FDA-Public Use
  Company Number: None

PATIENT
  Age: 84 Year
  Sex: Male
  Weight: 64 kg

DRUGS (1)
  1. ALLOPURINOL 100 MG [Suspect]
     Active Substance: ALLOPURINOL
     Indication: GOUT
     Route: 048
     Dates: start: 20150601, end: 20150616

REACTIONS (10)
  - Rash [None]
  - Rash pruritic [None]
  - Hepatic failure [None]
  - Cholelithiasis [None]
  - Pyrexia [None]
  - Feeding disorder [None]
  - Fluid intake reduced [None]
  - No therapeutic response [None]
  - Renal failure [None]
  - Refusal of treatment by patient [None]

NARRATIVE: CASE EVENT DATE: 20150617
